FAERS Safety Report 5609769-1 (Version None)
Quarter: 2008Q1

REPORT INFORMATION
  Report Type: 
  Country: None (occurrence: None)
  Receive Date: 20080131
  Receipt Date: 20071211
  Transmission Date: 20080703
  Serious: No
  Sender: FDA-Public Use
  Company Number: US-BAYER-200714134BCC

PATIENT
  Sex: Female

DRUGS (1)
  1. ALEVE [Suspect]
     Indication: CANCER PAIN
     Dosage: UNIT DOSE: 220 MG
     Route: 048
     Dates: start: 20071211

REACTIONS (1)
  - CANCER PAIN [None]
